FAERS Safety Report 6010813-0 (Version None)
Quarter: 2008Q4

REPORT INFORMATION
  Report Type: 
  Country: None (occurrence: None)
  Receive Date: 20081218
  Receipt Date: 20081212
  Transmission Date: 20090506
  Serious: Yes (Other)
  Sender: FDA-Public Use
  Company Number: PHHY2008JP32031

PATIENT
  Age: 63 Year
  Sex: Male

DRUGS (1)
  1. VOLTAREN [Suspect]
     Dosage: 25 MG
     Route: 048
     Dates: start: 20070401, end: 20070401

REACTIONS (1)
  - EPISTAXIS [None]
